FAERS Safety Report 7081535-2 (Version None)
Quarter: 2010Q4

REPORT INFORMATION
  Report Type: 
  Country: None (occurrence: None)
  Receive Date: 20101103
  Receipt Date: 20101026
  Transmission Date: 20110411
  Serious: Yes (Disabling)
  Sender: FDA-Public Use
  Company Number: US-MERCK-1010USA00133

PATIENT
  Age: 64 Year
  Sex: Female
  Weight: 71 kg

DRUGS (2)
  1. SINGULAIR [Suspect]
     Indication: ASTHMA
     Route: 048
     Dates: start: 19980101
  2. ADVAIR DISKUS 100/50 [Concomitant]
     Route: 055

REACTIONS (1)
  - ALLERGIC GRANULOMATOUS ANGIITIS [None]
